FAERS Safety Report 9784748 (Version 3)
Quarter: 2014Q1

REPORT INFORMATION
  Report Type: Spontaneous
  Country: US (occurrence: US)
  Receive Date: 20131227
  Receipt Date: 20140214
  Transmission Date: 20141002
  Serious: Yes (Other)
  Sender: FDA-Public Use
  Company Number: US-ASTRAZENECA-2013SE93276

PATIENT
  Age: 75 Year
  Sex: Male
  Weight: 117.9 kg

DRUGS (9)
  1. CRESTOR [Suspect]
     Indication: BLOOD CHOLESTEROL ABNORMAL
     Route: 048
  2. BRILINTA [Suspect]
     Indication: STENT PLACEMENT
     Route: 048
     Dates: start: 201308
  3. ASPIRIN [Concomitant]
  4. VITAMIN D3 [Concomitant]
     Indication: VITAMIN SUPPLEMENTATION
     Dosage: 2000 UNITS DAILY
     Dates: start: 2011
  5. CQ10 [Concomitant]
     Indication: PROPHYLAXIS
     Dates: start: 201310
  6. FOLIC ACID [Concomitant]
     Dates: start: 2008
  7. DIOVAN [Concomitant]
     Indication: BLOOD PRESSURE ABNORMAL
     Dates: start: 2010
  8. FINASTERIDE [Concomitant]
  9. VITAMIN B12 [Concomitant]

REACTIONS (14)
  - Myelodysplastic syndrome [Unknown]
  - Prostatic specific antigen abnormal [Unknown]
  - Epistaxis [Not Recovered/Not Resolved]
  - Blood count abnormal [Not Recovered/Not Resolved]
  - Haemorrhage [Unknown]
  - Cardiac disorder [Recovered/Resolved with Sequelae]
  - Sleep apnoea syndrome [Not Recovered/Not Resolved]
  - Oxygen saturation decreased [Not Recovered/Not Resolved]
  - Anaemia [Not Recovered/Not Resolved]
  - Contusion [Not Recovered/Not Resolved]
  - Eye inflammation [Recovering/Resolving]
  - Dyspnoea exertional [Not Recovered/Not Resolved]
  - Blood pressure abnormal [Unknown]
  - Fatigue [Not Recovered/Not Resolved]
